FAERS Safety Report 16926307 (Version 2)
Quarter: 2019Q4

REPORT INFORMATION
  Report Type: Report from Study
  Country: US (occurrence: US)
  Receive Date: 20191016
  Receipt Date: 20191205
  Transmission Date: 20200122
  Serious: Yes (Other)
  Sender: FDA-Public Use
  Company Number: US-GLAXOSMITHKLINE-US2019TSO184258

PATIENT
  Age: 65 Year
  Sex: Female

DRUGS (10)
  1. CARBOPLATIN (NON-GSK COMPARATOR) [Suspect]
     Active Substance: CARBOPLATIN
     Indication: NEOPLASM MALIGNANT
     Dosage: UNK
  2. PACLITAXEL. [Suspect]
     Active Substance: PACLITAXEL
     Indication: NEOPLASM MALIGNANT
     Dosage: UNK
  3. PACLITAXEL. [Suspect]
     Active Substance: PACLITAXEL
     Indication: METASTATIC NEOPLASM
     Dosage: 300 MG
     Dates: start: 20180607, end: 20180607
  4. NIRAPARIB [Suspect]
     Active Substance: NIRAPARIB
     Indication: METASTATIC NEOPLASM
  5. NIRAPARIB [Suspect]
     Active Substance: NIRAPARIB
     Indication: NEOPLASM MALIGNANT
  6. DOSTARLIMAB [Suspect]
     Active Substance: DOSTARLIMAB
     Indication: METASTATIC NEOPLASM
     Dosage: 1000 MG
     Dates: start: 20190916, end: 20190916
  7. DOSTARLIMAB [Suspect]
     Active Substance: DOSTARLIMAB
     Indication: NEOPLASM MALIGNANT
     Dosage: UNK
  8. BEVACIZUMAB. [Suspect]
     Active Substance: BEVACIZUMAB
     Indication: METASTATIC NEOPLASM
     Dosage: 1280 MG
     Dates: start: 20190411, end: 20190411
  9. CARBOPLATIN (NON-GSK COMPARATOR) [Suspect]
     Active Substance: CARBOPLATIN
     Indication: METASTATIC NEOPLASM
     Dosage: 615 MG
     Dates: start: 20180607, end: 20180607
  10. BEVACIZUMAB. [Suspect]
     Active Substance: BEVACIZUMAB
     Indication: NEOPLASM MALIGNANT
     Dosage: UNK

REACTIONS (1)
  - Breast cancer [Unknown]

NARRATIVE: CASE EVENT DATE: 20191007
